FAERS Safety Report 6897061-7 (Version None)
Quarter: 2010Q3

REPORT INFORMATION
  Report Type: 
  Country: None (occurrence: None)
  Receive Date: 20100802
  Receipt Date: 20100728
  Transmission Date: 20110219
  Serious: Yes (Hospitalization)
  Sender: FDA-Public Use
  Company Number: US-MERCK-1007USA03781

PATIENT
  Age: 64 Year
  Sex: Female

DRUGS (1)
  1. MAXALT [Suspect]
     Indication: MIGRAINE
     Route: 048
     Dates: start: 20080101

REACTIONS (4)
  - ADRENAL DISORDER [None]
  - COELIAC DISEASE [None]
  - IRON DEFICIENCY ANAEMIA [None]
  - RED BLOOD CELL COUNT DECREASED [None]
